FAERS Safety Report 9247594 (Version 1)
Quarter: 2013Q1

REPORT INFORMATION
  Report Type: Spontaneous
  Country: US (occurrence: None)
  Receive Date: 20121130
  Receipt Date: 20121130
  Transmission Date: 20140127
  Serious: No
  Sender: FDA-Public Use
  Company Number: 336643

PATIENT
  Age: 62 Year
  Sex: Female

DRUGS (2)
  1. NOVOLOG MIX 70/30 FLEXPEN [Suspect]
     Indication: TYPE 2 DIABETES MELLITUS
  2. NOVOLOG FLEXPEN [Suspect]
     Route: 058

REACTIONS (8)
  - Vision blurred [None]
  - Increased appetite [None]
  - Neck pain [None]
  - Fatigue [None]
  - Headache [None]
  - Weight increased [None]
  - Oedema [None]
  - Blood glucose abnormal [None]
